FAERS Safety Report 6835488-X (Version None)
Quarter: 2010Q3

REPORT INFORMATION
  Report Type: 
  Country: None (occurrence: None)
  Receive Date: 20100712
  Receipt Date: 20100712
  Transmission Date: 20110219
  Serious: Yes (Death)
  Sender: FDA-Public Use
  Company Number: None

PATIENT
  Sex: Male
  Weight: 80.7403 kg

DRUGS (13)
  1. REVLIMID [Suspect]
     Indication: MYELODYSPLASTIC SYNDROME
     Dosage: 20MG. DAILY ON DAYS 1-21 OF 28 DAY CYCLE ORAL
     Route: 048
     Dates: start: 20090305, end: 20090616
  2. ALLOPURINOL [Concomitant]
  3. METOPROLOL [Concomitant]
  4. OXYBUTYMIN [Concomitant]
  5. PROTONIX [Concomitant]
  6. PREDNISONE [Concomitant]
  7. SENOKOT [Concomitant]
  8. PNEUMOVAX 23 [Concomitant]
  9. ZOFRAN [Concomitant]
  10. DEXTROSE [Concomitant]
  11. UNASYN [Concomitant]
  12. DILAUDID [Concomitant]
  13. POTASSIUM CHLORIDE [Concomitant]

REACTIONS (3)
  - APHASIA [None]
  - HYPOPHAGIA [None]
  - MOVEMENT DISORDER [None]
